FAERS Safety Report 7584297-5 (Version None)
Quarter: 2011Q2

REPORT INFORMATION
  Report Type: 
  Country: None (occurrence: None)
  Receive Date: 20110630
  Receipt Date: 20110627
  Transmission Date: 20111010
  Serious: Yes (Other)
  Sender: FDA-Public Use
  Company Number: GXKR2011DE02130

PATIENT
  Sex: Female

DRUGS (1)
  1. ALBUTEROL SULATE [Suspect]
     Indication: HYPERSENSITIVITY

REACTIONS (1)
  - HAEMOPTYSIS [None]
